FAERS Safety Report 8788313 (Version 1)
Quarter: 2012Q4

REPORT INFORMATION
  Report Type: 
  Country: US (occurrence: US)
  Receive Date: 20120914
  Receipt Date: 20120914
  Transmission Date: 20130627
  Serious: No
  Sender: FDA-Public Use
  Company Number: US-VERTEX PHARMACEUTICAL INC.-AE-2012-010208

PATIENT

DRUGS (4)
  1. INCIVEK [Suspect]
     Indication: HEPATITIS C
     Route: 048
     Dates: start: 20120315, end: 20120607
  2. RIBAVIRIN [Concomitant]
     Indication: HEPATITIS C
     Dates: start: 20120315
  3. PEGINTERFERON [Concomitant]
     Indication: HEPATITIS C
     Dates: start: 20120315
  4. TAMSULOSIN [Concomitant]

REACTIONS (3)
  - Prostatic abscess [Recovered/Resolved]
  - Weight decreased [Unknown]
  - Pyrexia [Unknown]
